FAERS Safety Report 8487560-9 (Version None)
Quarter: 2012Q3

REPORT INFORMATION
  Report Type: 
  Country: None (occurrence: None)
  Receive Date: 20120705
  Receipt Date: 20120621
  Transmission Date: 20120928
  Serious: Yes (Hospitalization)
  Sender: FDA-Public Use
  Company Number: US-JNJFOC-20120400708

PATIENT
  Sex: Male
  Weight: 127.01 kg

DRUGS (3)
  1. REMICADE [Suspect]
     Indication: RHEUMATOID ARTHRITIS
     Route: 042
     Dates: start: 20111101
  2. REMICADE [Suspect]
     Route: 042
     Dates: start: 20100101, end: 20110901
  3. REMICADE [Suspect]
     Route: 042
     Dates: start: 20111001

REACTIONS (8)
  - MALAISE [None]
  - INFUSION RELATED REACTION [None]
  - BLISTER [None]
  - BLOOD PRESSURE INCREASED [None]
  - ERYTHEMA [None]
  - IMMUNE SYSTEM DISORDER [None]
  - VOMITING [None]
  - ULCER [None]
